FAERS Safety Report 12352419 (Version 1)
Quarter: 2016Q2

REPORT INFORMATION
  Report Type: Spontaneous
  Country: US (occurrence: US)
  Receive Date: 20160510
  Receipt Date: 20160510
  Transmission Date: 20160815
  Serious: No
  Sender: FDA-Public Use
  Company Number: US-BAYER-2016-086037

PATIENT

DRUGS (1)
  1. CLARITIN-D 24 HOUR [Suspect]
     Active Substance: LORATADINE\PSEUDOEPHEDRINE SULFATE
     Indication: FEELING ABNORMAL

REACTIONS (4)
  - Sleep disorder [None]
  - Off label use [None]
  - Sleep disorder [None]
  - Product use issue [None]

NARRATIVE: CASE EVENT DATE: 20160502
